FAERS Safety Report 4991439-4 (Version None)
Quarter: 2006Q2

REPORT INFORMATION
  Report Type: 
  Country: None (occurrence: None)
  Receive Date: 20060504
  Receipt Date: 20050913
  Transmission Date: 20061013
  Serious: Yes (Other)
  Sender: FDA-Public Use
  Company Number: 2005UW13553

PATIENT
  Age: 77 Year
  Sex: Male
  Weight: 65.8 kg

DRUGS (3)
  1. TOPROL-XL [Suspect]
     Indication: HEART RATE
     Route: 048
  2. TOPROL-XL [Suspect]
     Route: 048
  3. COUMADIN [Concomitant]
     Dosage: 3-4MG
     Route: 048

REACTIONS (2)
  - CEREBROVASCULAR ACCIDENT [None]
  - DYSPNOEA [None]
